FAERS Safety Report 6012276-8 (Version None)
Quarter: 2008Q4

REPORT INFORMATION
  Report Type: 
  Country: None (occurrence: None)
  Receive Date: 20081218
  Receipt Date: 20071212
  Transmission Date: 20090506
  Serious: Yes (Death)
  Sender: FDA-Public Use
  Company Number: JP-ROCHE-537225

PATIENT
  Age: 35 Year
  Sex: Female

DRUGS (2)
  1. RIVOTRIL [Suspect]
     Indication: DRUG USE FOR UNKNOWN INDICATION
     Route: 048
  2. ALCOHOL [Suspect]
     Indication: DRUG USE FOR UNKNOWN INDICATION
     Route: 048

REACTIONS (2)
  - DEATH [None]
  - INTENTIONAL OVERDOSE [None]
